FAERS Safety Report 10510255 (Version 1)
Quarter: 2014Q4

REPORT INFORMATION
  Report Type: Spontaneous
  Country: US (occurrence: None)
  Receive Date: 20141009
  Receipt Date: 20141009
  Transmission Date: 20150528
  Serious: Yes (Other)
  Sender: FDA-Public Use
  Company Number: None

PATIENT
  Age: 78 Year
  Sex: Male
  Weight: 75.3 kg

DRUGS (13)
  1. DOXYCYCLINE HYCLATE. [Suspect]
     Active Substance: DOXYCYCLINE HYCLATE
     Indication: SKIN INFECTION
     Dosage: 100 MG, 1 CAPSULE, 1 A DAY, BY MOUTH
     Route: 048
     Dates: start: 20140926, end: 20140928
  2. CALCIUM CITRATE D3 [Concomitant]
  3. SERTRALINE [Concomitant]
     Active Substance: SERTRALINE HYDROCHLORIDE
  4. RADIATION TREATMENT [Concomitant]
     Active Substance: RADIATION THERAPY
  5. CIPROFLOXACIN. [Concomitant]
     Active Substance: CIPROFLOXACIN
  6. ATORVASTATIN [Concomitant]
     Active Substance: ATORVASTATIN
  7. CARBAMAZEPINE? [Concomitant]
  8. BICALUTAMIDE. [Concomitant]
     Active Substance: BICALUTAMIDE
  9. TAMSAMULOSIN [Concomitant]
  10. RESTASIS [Concomitant]
     Active Substance: CYCLOSPORINE
  11. LUPRON INJECTION [Concomitant]
  12. PERSER VISION AREDS [Concomitant]
  13. REFRESH PLUS [Concomitant]
     Active Substance: CARBOXYMETHYLCELLULOSE SODIUM

REACTIONS (3)
  - Ocular hyperaemia [None]
  - Drug ineffective [None]
  - Blood pressure increased [None]

NARRATIVE: CASE EVENT DATE: 20140926
